FAERS Safety Report 15567317 (Version 1)
Quarter: 2018Q4

REPORT INFORMATION
  Report Type: Report from Study
  Country: US (occurrence: US)
  Receive Date: 20181030
  Receipt Date: 20181030
  Transmission Date: 20190205
  Serious: Yes (Hospitalization, Other)
  Sender: FDA-Public Use
  Company Number: US-ELI_LILLY_AND_COMPANY-US201810009917

PATIENT
  Sex: Female

DRUGS (3)
  1. TERIPARATIDE [Suspect]
     Active Substance: TERIPARATIDE
     Dosage: UNK, UNKNOWN
     Route: 065
     Dates: start: 201703
  2. TERIPARATIDE [Suspect]
     Active Substance: TERIPARATIDE
     Indication: OSTEOPOROSIS
     Dosage: UNK, UNKNOWN
     Route: 065
     Dates: start: 201703
  3. ASPIRIN                            /00002701/ [Concomitant]
     Active Substance: ASPIRIN
     Indication: PAIN

REACTIONS (15)
  - Loss of consciousness [Unknown]
  - Seroma [Unknown]
  - Injection site bruising [Unknown]
  - Fatigue [Unknown]
  - Tremor [Unknown]
  - Limb discomfort [Unknown]
  - Screaming [Unknown]
  - Contusion [Unknown]
  - Procedural haemorrhage [Unknown]
  - Pain in extremity [Unknown]
  - Wound secretion [Unknown]
  - Syncope [Unknown]
  - Bone development abnormal [Unknown]
  - Muscle spasms [Unknown]
  - Femur fracture [Unknown]
